FAERS Safety Report 18800034 (Version 1)
Quarter: 2021Q1

REPORT INFORMATION
  Report Type: Spontaneous
  Country: US (occurrence: US)
  Receive Date: 20210128
  Receipt Date: 20210128
  Transmission Date: 20210419
  Serious: Yes (Other)
  Sender: FDA-Public Use
  Company Number: None

PATIENT
  Age: 46 Year
  Sex: Male
  Weight: 79 kg

DRUGS (1)
  1. CISPLATIN (CISPLATIIN 100MG/VIL (PF) INJ) [Suspect]
     Active Substance: CISPLATIN
     Indication: TONSIL CANCER
     Dates: start: 20190506, end: 20190506

REACTIONS (2)
  - Deafness [None]
  - Tinnitus [None]

NARRATIVE: CASE EVENT DATE: 20190507
